FAERS Safety Report 11321997 (Version 4)
Quarter: 2016Q1

REPORT INFORMATION
  Report Type: Spontaneous
  Country: US (occurrence: US)
  Receive Date: 20150729
  Receipt Date: 20160318
  Transmission Date: 20160525
  Serious: No
  Sender: FDA-Public Use
  Company Number: US-009507513-1507USA007734

PATIENT
  Age: 47 Year
  Sex: Female
  Weight: 88.89 kg

DRUGS (1)
  1. IMPLANON [Suspect]
     Active Substance: ETONOGESTREL
     Dosage: UNK
     Route: 059
     Dates: start: 20110325

REACTIONS (4)
  - Drug dose omission [Unknown]
  - Complication associated with device [Recovered/Resolved]
  - Device expulsion [Recovered/Resolved]
  - Incorrect drug administration duration [Unknown]

NARRATIVE: CASE EVENT DATE: 20140128
